FAERS Safety Report 15220816 (Version 6)
Quarter: 2018Q3

REPORT INFORMATION
  Report Type: Spontaneous
  Country: US (occurrence: US)
  Receive Date: 20180731
  Receipt Date: 20180822
  Transmission Date: 20181010
  Serious: No
  Sender: FDA-Public Use
  Company Number: US-PFIZER INC-2018307476

PATIENT
  Age: 33 Year
  Sex: Female

DRUGS (9)
  1. GEODON [Suspect]
     Active Substance: ZIPRASIDONE HYDROCHLORIDE\ZIPRASIDONE MESYLATE
     Indication: AFFECTIVE DISORDER
     Dosage: 80 MG, 1X/DAY
  2. TOPAMAX [Suspect]
     Active Substance: TOPIRAMATE
     Dosage: 50 MG, UNK
  3. LEVOTHYROXINE. [Suspect]
     Active Substance: LEVOTHYROXINE
     Dosage: 50 UG, UNK
  4. STRATTERA [Suspect]
     Active Substance: ATOMOXETINE HYDROCHLORIDE
     Indication: ATTENTION DEFICIT/HYPERACTIVITY DISORDER
     Dosage: 80 MG, DAILY
  5. LEVOTHYROXINE. [Suspect]
     Active Substance: LEVOTHYROXINE
     Indication: HYPOTHYROIDISM
     Dosage: 0.5 MG, DAILY
  6. TOPAMAX [Suspect]
     Active Substance: TOPIRAMATE
     Dosage: 200 MG, UNK
  7. GEODON [Suspect]
     Active Substance: ZIPRASIDONE HYDROCHLORIDE\ZIPRASIDONE MESYLATE
     Dosage: 40 MG, 1X/DAYAT NIGHT
  8. GEODON [Suspect]
     Active Substance: ZIPRASIDONE HYDROCHLORIDE\ZIPRASIDONE MESYLATE
     Dosage: 100 MG, 1X/DAY AT NIGHT
     Dates: start: 201805, end: 201805
  9. VYVANSE [Suspect]
     Active Substance: LISDEXAMFETAMINE DIMESYLATE
     Dosage: 20 MG, UNK

REACTIONS (15)
  - Hyperventilation [Unknown]
  - Eye swelling [Unknown]
  - Neck injury [Unknown]
  - Malaise [Unknown]
  - Abnormal behaviour [Unknown]
  - Feeling abnormal [Unknown]
  - Anxiety [Unknown]
  - Motor dysfunction [Unknown]
  - Feeling drunk [Unknown]
  - Fatigue [Unknown]
  - Hyperphagia [Unknown]
  - Rash [Unknown]
  - Thinking abnormal [Unknown]
  - Anger [Unknown]
  - Urticaria [Unknown]

NARRATIVE: CASE EVENT DATE: 201801
